FAERS Safety Report 9502924 (Version 2)
Quarter: 2013Q3

REPORT INFORMATION
  Report Type: Report from Study
  Country: ES (occurrence: ES)
  Receive Date: 20130906
  Receipt Date: 20130906
  Transmission Date: 20140515
  Serious: No
  Sender: FDA-Public Use
  Company Number: PHHY2013ES080987

PATIENT
  Age: 54 Year
  Sex: Male
  Weight: 75 kg

DRUGS (4)
  1. SOM230 [Suspect]
     Indication: PITUITARY-DEPENDENT CUSHING^S SYNDROME
     Dosage: 0.6 MG /12 HOURS
     Route: 058
     Dates: start: 20130727
  2. SOM230 [Suspect]
     Dosage: 0.3 MG/12 HOURS, FOR 4 DAYS
     Route: 058
  3. SOM230 [Suspect]
     Dosage: 0.3-0.6 MG FOR 4 DAYS
     Route: 058
  4. SOM230 [Suspect]
     Dosage: 0.6 MG /12 HOURS
     Route: 058
     Dates: start: 20130727

REACTIONS (3)
  - Deficiency of bile secretion [Recovering/Resolving]
  - Faeces discoloured [Recovering/Resolving]
  - Diarrhoea [Recovered/Resolved]
